FAERS Safety Report 7481420-8 (Version None)
Quarter: 2011Q2

REPORT INFORMATION
  Report Type: 
  Country: None (occurrence: None)
  Receive Date: 20110516
  Receipt Date: 20110504
  Transmission Date: 20111010
  Serious: Yes (Hospitalization)
  Sender: FDA-Public Use
  Company Number: US-ACTELION-A-NJ2011-48165

PATIENT

DRUGS (3)
  1. VENTAVIS [Suspect]
     Indication: PULMONARY ARTERIAL HYPERTENSION
     Dosage: UNK
     Route: 055
     Dates: start: 20071123, end: 20110401
  2. REVATIO [Concomitant]
  3. VENTAVIS [Suspect]
     Dosage: UNK
     Route: 055
     Dates: start: 20110401

REACTIONS (2)
  - OEDEMA [None]
  - CHOLECYSTITIS INFECTIVE [None]
